FAERS Safety Report 21208505 (Version 2)
Quarter: 2022Q3

REPORT INFORMATION
  Report Type: Spontaneous
  Country: CZ (occurrence: CZ)
  Receive Date: 20220812
  Receipt Date: 20220824
  Transmission Date: 20221027
  Serious: Yes (Hospitalization)
  Sender: FDA-Public Use
  Company Number: CZ-Orion Corporation ORION PHARMA-PARO2022-0003

PATIENT
  Age: 68 Year
  Sex: Male

DRUGS (5)
  1. RISPERIDONE [Interacting]
     Active Substance: RISPERIDONE
     Indication: Depression
     Dosage: 1 MILLIGRAM, 1-0-1
     Route: 048
  2. PAROXETINE [Interacting]
     Active Substance: PAROXETINE
     Indication: Depression
     Dosage: 20 MILLIGRAM, 1-0-1
     Route: 048
  3. PREGABALIN [Suspect]
     Active Substance: PREGABALIN
     Indication: Depression
     Dosage: (THRICE A DAY) 1-1-1
     Route: 048
  4. PERINDOPRIL [Concomitant]
     Active Substance: PERINDOPRIL
     Indication: Depression
     Dosage: 1-0-1
     Route: 048
  5. ASPIRIN [Concomitant]
     Active Substance: ASPIRIN
     Indication: Depression
     Dosage: 100 MILLIGRAM, QD ( 0-1-0)
     Route: 048

REACTIONS (10)
  - Drug level increased [Unknown]
  - Mobility decreased [Unknown]
  - Inhibitory drug interaction [Unknown]
  - Constipation [Unknown]
  - Dysarthria [Recovering/Resolving]
  - Tremor [Recovering/Resolving]
  - Extrapyramidal disorder [Recovering/Resolving]
  - Product use in unapproved indication [Unknown]
  - Therapeutic product effect incomplete [Recovered/Resolved]
  - Drug interaction [Recovered/Resolved]
